FAERS Safety Report 6193045-5 (Version None)
Quarter: 2009Q2

REPORT INFORMATION
  Report Type: 
  Country: None (occurrence: None)
  Receive Date: 20090518
  Receipt Date: 20090427
  Transmission Date: 20091009
  Serious: Yes (Death)
  Sender: FDA-Public Use
  Company Number: US-BAYER-200839175NA

PATIENT
  Age: 56 Year
  Sex: Female

DRUGS (32)
  1. MAGNEVIST [Suspect]
     Indication: NUCLEAR MAGNETIC RESONANCE IMAGING BRAIN
     Dates: start: 20041023, end: 20041023
  2. OMNISCAN [Suspect]
     Indication: NUCLEAR MAGNETIC RESONANCE IMAGING BRAIN
     Dates: start: 20001221, end: 20001221
  3. OMNISCAN [Suspect]
     Dates: start: 20010130, end: 20010130
  4. OPTIMARK [Suspect]
     Indication: NUCLEAR MAGNETIC RESONANCE IMAGING
     Dates: start: 20040611, end: 20040611
  5. HUMALOG [Concomitant]
     Indication: DIABETES MELLITUS
  6. LANTUS [Concomitant]
  7. LONITEN [Concomitant]
  8. LEXAPRO [Concomitant]
  9. COUMADIN [Concomitant]
  10. IRON SUPPLEMENT [Concomitant]
     Indication: ANAEMIA
  11. OXYCODONE HCL [Concomitant]
     Indication: PAIN
  12. NORVASC [Concomitant]
  13. PLAVIX [Concomitant]
  14. OXYGEN [Concomitant]
     Indication: CHRONIC OBSTRUCTIVE PULMONARY DISEASE
  15. VASOTEC [Concomitant]
  16. COREG [Concomitant]
  17. LIPITOR [Concomitant]
  18. ATACAND [Concomitant]
  19. LANOXIN [Concomitant]
  20. PROCRIT [Concomitant]
  21. VENOFER [Concomitant]
  22. ZEMPLAR [Concomitant]
  23. REGLAN [Concomitant]
  24. DULCOLAX [Concomitant]
  25. ARANESP [Concomitant]
  26. PROTONIX [Concomitant]
  27. HYDRALAZINE HCL [Concomitant]
  28. METOPROLOL [Concomitant]
  29. LISINOPRIL [Concomitant]
  30. FLEXERIL [Concomitant]
  31. VALIUM [Concomitant]
  32. PHOSLO [Concomitant]

REACTIONS (22)
  - ACTIVITIES OF DAILY LIVING IMPAIRED [None]
  - ANHEDONIA [None]
  - ANXIETY [None]
  - CHEST PAIN [None]
  - DRY SKIN [None]
  - EMOTIONAL DISTRESS [None]
  - JOINT CONTRACTURE [None]
  - JOINT STIFFNESS [None]
  - MOBILITY DECREASED [None]
  - MUSCLE TIGHTNESS [None]
  - MUSCULAR WEAKNESS [None]
  - NEPHROGENIC SYSTEMIC FIBROSIS [None]
  - OEDEMA PERIPHERAL [None]
  - PAIN [None]
  - PAIN OF SKIN [None]
  - PARALYSIS [None]
  - RASH MACULAR [None]
  - SCAR [None]
  - SKIN DISCOLOURATION [None]
  - SKIN EXFOLIATION [None]
  - SKIN HYPERTROPHY [None]
  - SKIN WARM [None]
